FAERS Safety Report 5276903-5 (Version None)
Quarter: 2007Q1

REPORT INFORMATION
  Report Type: 
  Country: None (occurrence: None)
  Receive Date: 20070327
  Receipt Date: 20070316
  Transmission Date: 20070707
  Serious: Yes (Hospitalization, Other)
  Sender: FDA-Public Use
  Company Number: PHEH2007US03188

PATIENT
  Age: 59 Year
  Sex: Female
  Weight: 96.145 kg

DRUGS (11)
  1. ESTRADERM [Suspect]
     Dosage: 0.1 MG, UNK
     Route: 062
     Dates: start: 19990802
  2. LOESTRIN 1.5/30 [Suspect]
     Dosage: 1.5 MG, UNK
     Dates: start: 19940908
  3. PREMPRO [Suspect]
     Indication: MENOPAUSAL SYMPTOMS
     Dosage: .625/5 MG
     Route: 048
     Dates: start: 19970625, end: 20011202
  4. PREMARIN [Suspect]
     Indication: MENOPAUSAL SYMPTOMS
     Dosage: 0.625 MG, QD
     Route: 048
     Dates: start: 19840926, end: 19971001
  5. PROVERA [Suspect]
     Indication: MENOPAUSAL SYMPTOMS
     Dosage: 2.5 MG, QD
     Route: 048
     Dates: start: 19940523
  6. PROVERA [Suspect]
     Dosage: 5 MG, QD
     Route: 048
     Dates: start: 19960102, end: 19971001
  7. ESTRACE [Suspect]
     Indication: HORMONE REPLACEMENT THERAPY
     Dosage: 1 MG, QD
     Route: 048
     Dates: start: 19940523
  8. ESTRACE VAGINAL CREAM [Suspect]
     Indication: MENOPAUSAL SYMPTOMS
     Dosage: 2 G ONCDE PER WEEK
     Route: 067
     Dates: start: 19940427
  9. ESTRACE VAGINAL CREAM [Suspect]
     Dosage: 2 G ONCE PER WEEK
     Route: 067
     Dates: start: 19940523
  10. PRILOSEC [Concomitant]
     Indication: REFLUX OESOPHAGITIS
     Dosage: 20 MG, QD
     Route: 048
  11. AVALIDE [Concomitant]
     Dosage: 150/12.5 MG
     Route: 048
     Dates: start: 20000719

REACTIONS (49)
  - ABDOMINAL ADHESIONS [None]
  - ABDOMINAL OPERATION [None]
  - ABDOMINAL PAIN [None]
  - ADHESIOLYSIS [None]
  - BASAL CELL CARCINOMA [None]
  - BLADDER PROLAPSE [None]
  - BREAST CANCER [None]
  - BURSITIS [None]
  - CARDIAC VALVE DISEASE [None]
  - CATARACT [None]
  - CENTRAL VENOUS CATHETERISATION [None]
  - CERVIX DISORDER [None]
  - CHOLELITHIASIS [None]
  - COLOSTOMY [None]
  - DIVERTICULUM [None]
  - EMOTIONAL DISTRESS [None]
  - ENTEROSTOMY [None]
  - FIBROCYSTIC BREAST DISEASE [None]
  - HAEMORRHAGIC OVARIAN CYST [None]
  - HERNIA [None]
  - HYPERCHOLESTEROLAEMIA [None]
  - HYPERTENSION [None]
  - INCISIONAL HERNIA [None]
  - INJURY [None]
  - LEUKOPENIA [None]
  - MASS [None]
  - MENOPAUSE [None]
  - NON-CARDIAC CHEST PAIN [None]
  - OOPHORECTOMY [None]
  - OSTEOARTHRITIS [None]
  - OVARIAN CYSTECTOMY [None]
  - PAIN [None]
  - PELVIC ABSCESS [None]
  - PELVIC PAIN [None]
  - POST PROCEDURAL COMPLICATION [None]
  - POSTMENOPAUSAL HAEMORRHAGE [None]
  - RADICAL MASTECTOMY [None]
  - RECTAL PROLAPSE [None]
  - RENAL FAILURE ACUTE [None]
  - SMALL INTESTINAL RESECTION [None]
  - SYNOVITIS [None]
  - TENDONITIS [None]
  - TUBAL LIGATION [None]
  - UPPER RESPIRATORY TRACT INFECTION [None]
  - URINARY INCONTINENCE [None]
  - URINARY TRACT INFECTION [None]
  - UTERINE HAEMORRHAGE [None]
  - UTERINE PROLAPSE REPAIR [None]
  - VAGINAL INFECTION [None]
